FAERS Safety Report 8137472-5 (Version None)
Quarter: 2012Q1

REPORT INFORMATION
  Report Type: 
  Country: None (occurrence: None)
  Receive Date: 20120103
  Receipt Date: 20111021
  Transmission Date: 20120608
  Serious: No
  Sender: FDA-Public Use
  Company Number: AE-2011-001434

PATIENT
  Age: 34 Year
  Sex: Female
  Weight: 90.7194 kg

DRUGS (5)
  1. WELLBUTRIN XL [Concomitant]
  2. INCIVEK [Suspect]
     Dosage: 2250 MG (750 MG, 3 IN 1 D), ORAL
     Route: 048
     Dates: start: 20110824, end: 20110929
  3. RIBAVIRIN [Concomitant]
  4. PEGASYS [Concomitant]
  5. DICYCLOMINE [Concomitant]

REACTIONS (12)
  - ANORECTAL DISCOMFORT [None]
  - DIARRHOEA [None]
  - DEPRESSION [None]
  - NAUSEA [None]
  - IRRITABILITY [None]
  - RASH [None]
  - MALAISE [None]
  - RECTAL HAEMORRHAGE [None]
  - FATIGUE [None]
  - HEADACHE [None]
  - RECTAL FISSURE [None]
  - PROCTALGIA [None]
